FAERS Safety Report 5640805-2 (Version None)
Quarter: 2008Q1

REPORT INFORMATION
  Report Type: 
  Country: None (occurrence: None)
  Receive Date: 20080227
  Receipt Date: 20080213
  Transmission Date: 20080703
  Serious: Yes (Other)
  Sender: FDA-Public Use
  Company Number: B0478320A

PATIENT

DRUGS (6)
  1. HYCAMTIN [Suspect]
     Indication: GLIOBLASTOMA MULTIFORME
     Dosage: 1.25MGM2 TWO TIMES PER WEEK
     Route: 042
  2. CRANIAL IRRADIATION [Concomitant]
     Indication: GLIOBLASTOMA MULTIFORME
  3. PROCARBAZINE [Concomitant]
     Indication: GLIOBLASTOMA MULTIFORME
     Route: 065
  4. LOMUSTINE [Concomitant]
     Indication: GLIOBLASTOMA MULTIFORME
     Route: 065
  5. VINCRISTINE [Concomitant]
     Indication: GLIOBLASTOMA MULTIFORME
     Route: 065
  6. TEMOZOLOMIDE [Concomitant]
     Indication: GLIOBLASTOMA MULTIFORME
     Route: 065

REACTIONS (1)
  - PULMONARY EMBOLISM [None]
